FAERS Safety Report 11825529 (Version 2)
Quarter: 2016Q1

REPORT INFORMATION
  Report Type: Spontaneous
  Country: US (occurrence: US)
  Receive Date: 20151211
  Receipt Date: 20160202
  Transmission Date: 20160525
  Serious: No
  Sender: FDA-Public Use
  Company Number: US-JNJFOC-20150800848

PATIENT
  Age: 81 Year
  Sex: Female

DRUGS (11)
  1. IMBRUVICA [Suspect]
     Active Substance: IBRUTINIB
     Indication: LYMPHOMA
     Route: 048
     Dates: start: 2015
  2. IMBRUVICA [Suspect]
     Active Substance: IBRUTINIB
     Indication: CHRONIC LYMPHOCYTIC LEUKAEMIA
     Route: 048
  3. IMBRUVICA [Suspect]
     Active Substance: IBRUTINIB
     Indication: CHRONIC LYMPHOCYTIC LEUKAEMIA
     Route: 048
     Dates: start: 2015
  4. IMBRUVICA [Suspect]
     Active Substance: IBRUTINIB
     Indication: CHRONIC LYMPHOCYTIC LEUKAEMIA
     Route: 048
     Dates: start: 2015
  5. SYNTHROID [Concomitant]
     Active Substance: LEVOTHYROXINE SODIUM
  6. IMBRUVICA [Suspect]
     Active Substance: IBRUTINIB
     Indication: CHRONIC LYMPHOCYTIC LEUKAEMIA
     Route: 048
     Dates: start: 20150625, end: 2015
  7. IMBRUVICA [Suspect]
     Active Substance: IBRUTINIB
     Indication: LYMPHOMA
     Route: 048
     Dates: start: 20150625, end: 2015
  8. IMBRUVICA [Suspect]
     Active Substance: IBRUTINIB
     Indication: LYMPHOMA
     Route: 048
     Dates: start: 2015
  9. IMBRUVICA [Suspect]
     Active Substance: IBRUTINIB
     Indication: LYMPHOMA
     Route: 048
  10. IBUPROFEN. [Concomitant]
     Active Substance: IBUPROFEN
  11. TIMOLOL. [Concomitant]
     Active Substance: TIMOLOL

REACTIONS (17)
  - Contusion [Unknown]
  - Myalgia [Unknown]
  - Peripheral swelling [Unknown]
  - Pain [Unknown]
  - Unevaluable event [Unknown]
  - Hypoaesthesia [Unknown]
  - Myofascial spasm [Recovering/Resolving]
  - Arthralgia [Unknown]
  - Abasia [Unknown]
  - Pruritus [Unknown]
  - Joint swelling [Unknown]
  - Dysphonia [Unknown]
  - Hyperaesthesia [Unknown]
  - Burning sensation [Unknown]
  - Migraine [Unknown]
  - Paronychia [Unknown]
  - Constipation [Unknown]

NARRATIVE: CASE EVENT DATE: 2015
